FAERS Safety Report 13669818 (Version 1)
Quarter: 2017Q2

REPORT INFORMATION
  Report Type: Spontaneous
  Country: US (occurrence: US)
  Receive Date: 20170620
  Receipt Date: 20170620
  Transmission Date: 20170830
  Serious: No
  Sender: FDA-Public Use
  Company Number: US-BRAEBURN PHARMACEUTICALS, INC.-2017BBN00016

PATIENT
  Age: 40 Year
  Sex: Male

DRUGS (2)
  1. PROBUPHINE [Suspect]
     Active Substance: BUPRENORPHINE HYDROCHLORIDE
     Dosage: UNK; 1.5 RODS REMAINED IMPLANTED
     Dates: start: 20170222, end: 2017
  2. PROBUPHINE [Suspect]
     Active Substance: BUPRENORPHINE HYDROCHLORIDE
     Indication: DRUG USE DISORDER
     Dosage: 4 DOSAGE UNITS, UNK
     Route: 059
     Dates: start: 20161228, end: 20170222

REACTIONS (8)
  - Fatigue [Unknown]
  - Nervousness [Unknown]
  - Drug withdrawal syndrome [Not Recovered/Not Resolved]
  - Appetite disorder [Unknown]
  - Sleep disorder [Not Recovered/Not Resolved]
  - Night sweats [Unknown]
  - Agitation [Unknown]
  - Drug administered at inappropriate site [Recovered/Resolved]

NARRATIVE: CASE EVENT DATE: 20161228
